FAERS Safety Report 22288536 (Version 1)
Quarter: 2023Q2

REPORT INFORMATION
  Report Type: Spontaneous
  Country: US (occurrence: US)
  Receive Date: 20230505
  Receipt Date: 20230505
  Transmission Date: 20230722
  Serious: No
  Sender: FDA-Public Use
  Company Number: US-009507513-2304USA007411

PATIENT
  Age: 37 Year
  Sex: Female

DRUGS (1)
  1. EMEND [Suspect]
     Active Substance: APREPITANT
     Indication: Prophylaxis of nausea and vomiting
     Dosage: 150 MG
     Route: 042
     Dates: end: 20230418

REACTIONS (1)
  - Infusion site extravasation [Recovering/Resolving]

NARRATIVE: CASE EVENT DATE: 20230418
